FAERS Safety Report 19177942 (Version 2)
Quarter: 2021Q3

REPORT INFORMATION
  Report Type: Report from Study
  Country: US (occurrence: US)
  Receive Date: 20210426
  Receipt Date: 20210730
  Transmission Date: 20211014
  Serious: No
  Sender: FDA-Public Use
  Company Number: US-ACADIA PHARMACEUTICALS INC.-ACA-2021-PIM-001265

PATIENT
  Age: 13 Year
  Sex: Male

DRUGS (6)
  1. NUPLAZID [Suspect]
     Active Substance: PIMAVANSERIN TARTRATE
     Indication: SCHIZOPHRENIA
     Dosage: 68 MILLIGRAM, QD
     Route: 048
     Dates: start: 20191221
  2. BETHANECHOL [Concomitant]
     Active Substance: BETHANECHOL
  3. CLONIDINE. [Concomitant]
     Active Substance: CLONIDINE
  4. XANAX [Concomitant]
     Active Substance: ALPRAZOLAM
  5. NUPLAZID [Suspect]
     Active Substance: PIMAVANSERIN TARTRATE
     Indication: SCHIZOPHRENIA
     Dosage: 44 MG (34 MG CAPSULE AND 10 MG DAILY)
     Route: 048
  6. NUPLAZID [Suspect]
     Active Substance: PIMAVANSERIN TARTRATE
     Dosage: 44 MG (34 MG CAPSULE AND 10 MG DAILY)
     Route: 048

REACTIONS (6)
  - Overdose [Unknown]
  - Overdose [Unknown]
  - Nausea [Unknown]
  - Off label use [Unknown]
  - Abdominal discomfort [Not Recovered/Not Resolved]
  - Vomiting [Unknown]

NARRATIVE: CASE EVENT DATE: 20191221
